FAERS Safety Report 12635483 (Version 1)
Quarter: 2016Q3

REPORT INFORMATION
  Report Type: Spontaneous
  Country: US (occurrence: US)
  Receive Date: 20160808
  Receipt Date: 20160808
  Transmission Date: 20161109
  Serious: Yes (Hospitalization)
  Sender: FDA-Public Use
  Company Number: US-BEH-2016072002

PATIENT
  Age: 54 Year
  Sex: Female
  Weight: 135.6 kg

DRUGS (32)
  1. ZEMAIRA [Suspect]
     Active Substance: .ALPHA.1-PROTEINASE INHIBITOR HUMAN
     Indication: ALPHA-1 ANTI-TRYPSIN DEFICIENCY
  2. LOSARTAN POTASSIUM. [Concomitant]
     Active Substance: LOSARTAN POTASSIUM
  3. HEPARIN [Concomitant]
     Active Substance: HEPARIN SODIUM
  4. TIZANIDINE. [Concomitant]
     Active Substance: TIZANIDINE
  5. OXYGEN. [Concomitant]
     Active Substance: OXYGEN
  6. ACETAMINOPHEN. [Concomitant]
     Active Substance: ACETAMINOPHEN
  7. DALIRESP [Concomitant]
     Active Substance: ROFLUMILAST
  8. MUCINEX [Concomitant]
     Active Substance: GUAIFENESIN
  9. FIORICET [Concomitant]
     Active Substance: ACETAMINOPHEN\BUTALBITAL\CAFFEINE
  10. SPIRIVA [Concomitant]
     Active Substance: TIOTROPIUM BROMIDE MONOHYDRATE
  11. SYMBICORT [Concomitant]
     Active Substance: BUDESONIDE\FORMOTEROL FUMARATE DIHYDRATE
  12. DIPHENHYDRAMINE. [Concomitant]
     Active Substance: DIPHENHYDRAMINE
  13. LMX                                /00033401/ [Concomitant]
  14. TRAMADOL. [Concomitant]
     Active Substance: TRAMADOL
  15. WELLBUTRIN [Concomitant]
     Active Substance: BUPROPION HYDROCHLORIDE
  16. ZEMAIRA [Suspect]
     Active Substance: .ALPHA.1-PROTEINASE INHIBITOR HUMAN
     Indication: OBSTRUCTIVE AIRWAYS DISORDER
  17. SODIUM CHLORIDE + DEXTROSE [Concomitant]
  18. ROPINIROLE. [Concomitant]
     Active Substance: ROPINIROLE
  19. LEVOCETIRIZINE DIHYDROCHLORIDE. [Concomitant]
     Active Substance: LEVOCETIRIZINE DIHYDROCHLORIDE
  20. DIAZEPAM. [Concomitant]
     Active Substance: DIAZEPAM
  21. ZEMAIRA [Suspect]
     Active Substance: .ALPHA.1-PROTEINASE INHIBITOR HUMAN
     Indication: ENZYME ACTIVITY DECREASED
     Dosage: 60 MG/KG, QW
     Route: 042
  22. IPRATROPIUM BROMIDE. [Concomitant]
     Active Substance: IPRATROPIUM BROMIDE
  23. GABAPENTIN. [Concomitant]
     Active Substance: GABAPENTIN
  24. ONDANSETRON [Concomitant]
     Active Substance: ONDANSETRON
  25. ALBUTEROL                          /00139501/ [Concomitant]
     Active Substance: ALBUTEROL
  26. NEXIUM [Concomitant]
     Active Substance: ESOMEPRAZOLE MAGNESIUM
  27. METOPROLOL                         /00376902/ [Concomitant]
     Active Substance: METOPROLOL
  28. PROAIR HFA [Concomitant]
     Active Substance: ALBUTEROL SULFATE
  29. EPIPEN [Concomitant]
     Active Substance: EPINEPHRINE
  30. PROZAC [Concomitant]
     Active Substance: FLUOXETINE HYDROCHLORIDE
  31. NYSTATIN. [Concomitant]
     Active Substance: NYSTATIN
  32. HYDROCODONE                        /00060002/ [Concomitant]
     Active Substance: HYDROCODONE

REACTIONS (1)
  - Nasopharyngitis [Not Recovered/Not Resolved]

NARRATIVE: CASE EVENT DATE: 20160301
